FAERS Safety Report 8283203-8 (Version None)
Quarter: 2012Q2

REPORT INFORMATION
  Report Type: 
  Country: None (occurrence: None)
  Receive Date: 20120413
  Receipt Date: 20120410
  Transmission Date: 20120825
  Serious: Yes (Hospitalization, Disabling, Other)
  Sender: FDA-Public Use
  Company Number: US-MERCK-1103USA00905

PATIENT
  Age: 56 Year
  Sex: Female

DRUGS (7)
  1. ALENDRONATE SODIUM [Suspect]
     Indication: OSTEOPOROSIS
     Route: 048
     Dates: start: 20080101
  2. FOSAMAX [Suspect]
     Indication: OSTEOPENIA
     Route: 048
     Dates: start: 20020101, end: 20030601
  3. FOSAMAX [Suspect]
     Route: 048
     Dates: start: 20080101, end: 20100301
  4. OS-CAL + D [Concomitant]
     Indication: OSTEOPENIA
     Route: 065
     Dates: start: 20090101
  5. FOSAMAX [Suspect]
     Route: 048
     Dates: start: 20030101, end: 20080401
  6. CITRACAL + D [Concomitant]
     Indication: OSTEOPENIA
     Route: 065
     Dates: start: 20040101
  7. ALENDRONATE SODIUM [Suspect]
     Indication: OSTEOPOROSIS PROPHYLAXIS
     Route: 048
     Dates: start: 20080101

REACTIONS (10)
  - FRACTURE [None]
  - ARTHRITIS [None]
  - HYPERTENSION [None]
  - RIB FRACTURE [None]
  - BLOOD CHOLESTEROL INCREASED [None]
  - TOOTH INFECTION [None]
  - FOOT FRACTURE [None]
  - OSTEOPOROSIS [None]
  - FEMUR FRACTURE [None]
  - LOW TURNOVER OSTEOPATHY [None]
